FAERS Safety Report 8571751-2 (Version None)
Quarter: 2012Q3

REPORT INFORMATION
  Report Type: 
  Country: None (occurrence: None)
  Receive Date: 20120806
  Receipt Date: 20120803
  Transmission Date: 20120928
  Serious: Yes (Hospitalization)
  Sender: FDA-Public Use
  Company Number: PHHY2012PT067035

PATIENT
  Sex: Male
  Weight: 80 kg

DRUGS (3)
  1. GOSERELIN [Concomitant]
  2. ZOMETA [Suspect]
     Indication: METASTASES TO BONE
  3. DOCETAXEL [Concomitant]
     Dosage: UNK
     Dates: start: 20120101

REACTIONS (1)
  - OSTEONECROSIS OF JAW [None]
